FAERS Safety Report 7596700-5 (Version None)
Quarter: 2011Q3

REPORT INFORMATION
  Report Type: 
  Country: None (occurrence: None)
  Receive Date: 20110708
  Receipt Date: 20110627
  Transmission Date: 20111222
  Serious: Yes (Hospitalization)
  Sender: FDA-Public Use
  Company Number: CA-JNJFOC-20110503374

PATIENT
  Age: 48 Year
  Sex: Female
  Weight: 74.84 kg

DRUGS (8)
  1. REMICADE [Suspect]
     Indication: RHEUMATOID ARTHRITIS
     Route: 042
     Dates: start: 20110309
  2. DICLOWAL [Concomitant]
     Indication: OSTEOPOROSIS PROPHYLAXIS
  3. REMICADE [Suspect]
     Indication: CROHN'S DISEASE
     Route: 042
     Dates: start: 20110309
  4. REMICADE [Suspect]
     Route: 042
     Dates: start: 20021205
  5. REMICADE [Suspect]
     Route: 042
     Dates: start: 20021205
  6. VITAMIN B-12 [Concomitant]
     Indication: VITAMIN SUPPLEMENTATION
  7. REMICADE [Suspect]
     Indication: PSORIASIS
     Route: 042
     Dates: start: 20021205
  8. REMICADE [Suspect]
     Route: 042
     Dates: start: 20110309

REACTIONS (2)
  - FISTULA REPAIR [None]
  - INTESTINAL RESECTION [None]
